FAERS Safety Report 25332230 (Version 1)
Quarter: 2025Q2

REPORT INFORMATION
  Report Type: Spontaneous
  Country: KR (occurrence: KR)
  Receive Date: 20250519
  Receipt Date: 20250519
  Transmission Date: 20250717
  Serious: Yes (Other)
  Sender: PFIZER
  Company Number: KR-PFIZER INC-202500097938

PATIENT
  Age: 75 Year
  Sex: Male

DRUGS (1)
  1. SUNITINIB MALATE [Suspect]
     Active Substance: SUNITINIB MALATE
     Indication: Renal cancer
     Dosage: 50 MG, DAILY, TWO WEEKS ON AND ONE WEEK OFF
     Route: 048

REACTIONS (2)
  - Blister [Not Recovered/Not Resolved]
  - Skin erosion [Not Recovered/Not Resolved]
